FAERS Safety Report 7684450-6 (Version None)
Quarter: 2011Q3

REPORT INFORMATION
  Report Type: 
  Country: None (occurrence: None)
  Receive Date: 20110816
  Receipt Date: 20110803
  Transmission Date: 20111222
  Serious: No
  Sender: FDA-Public Use
  Company Number: US-BIOGENIDEC-2011BI015451

PATIENT
  Age: 51 Year
  Sex: Female

DRUGS (2)
  1. PAIN MEDICINE [Concomitant]
     Indication: MULTIPLE SCLEROSIS
  2. TYSABRI [Suspect]
     Indication: MULTIPLE SCLEROSIS
     Route: 042
     Dates: start: 20110322

REACTIONS (7)
  - CHEST DISCOMFORT [None]
  - EAR PAIN [None]
  - SLEEP APNOEA SYNDROME [None]
  - URTICARIA [None]
  - FALL [None]
  - PAIN IN EXTREMITY [None]
  - PRURITUS [None]
